FAERS Safety Report 8798861 (Version 4)
Quarter: 2013Q1

REPORT INFORMATION
  Report Type: Report from Study
  Country: US (occurrence: US)
  Receive Date: 20120920
  Receipt Date: 20130225
  Transmission Date: 20140127
  Serious: Yes (Life-Threatening, Hospitalization)
  Sender: FDA-Public Use
  Company Number: US-MERCK-1209USA007754

PATIENT
  Age: 64 Year
  Sex: Female
  Weight: 61.1 kg

DRUGS (24)
  1. VORINOSTAT [Suspect]
     Indication: DIFFUSE LARGE B-CELL LYMPHOMA
     Dosage: 300 MG, QD, ON DAY 1-5
     Route: 048
     Dates: start: 20120829, end: 20120902
  2. VORINOSTAT [Suspect]
     Dosage: 300 MG, QD
     Route: 048
     Dates: start: 20120919, end: 20120923
  3. VORINOSTAT [Suspect]
     Dosage: 400 MG, QD
     Route: 048
     Dates: start: 20121105, end: 20121109
  4. VORINOSTAT [Suspect]
     Dosage: 400 MG, QD
     Route: 048
     Dates: start: 20130128, end: 20130130
  5. RITUXIMAB [Suspect]
     Indication: DIFFUSE LARGE B-CELL LYMPHOMA
     Dosage: 375 MG/M2, ONCE ON DAY 3
     Route: 042
     Dates: start: 20120831, end: 20120831
  6. RITUXIMAB [Suspect]
     Dosage: 375 MG/M2, ONCE ON DAY 3
     Route: 042
     Dates: start: 20120921, end: 20120921
  7. RITUXIMAB [Suspect]
     Dosage: 375 MG/M2, ONCE ON DAY 3
     Route: 042
     Dates: start: 20121107, end: 20121107
  8. RITUXIMAB [Suspect]
     Dosage: 375 MG/M2,ON DAY 3
     Route: 042
     Dates: start: 20130130, end: 20130130
  9. CYCLOPHOSPHAMIDE [Suspect]
     Indication: DIFFUSE LARGE B-CELL LYMPHOMA
     Dosage: 750 MG/M2, OVER 30-60 MINUTES ON DAY 3
     Route: 042
     Dates: start: 20120831, end: 20120831
  10. CYCLOPHOSPHAMIDE [Suspect]
     Dosage: 750 MG/M2, OVER 30-60 MINUTES ON DAY 3
     Route: 042
     Dates: start: 20120921, end: 20120921
  11. CYCLOPHOSPHAMIDE [Suspect]
     Dosage: 750 MG/M2, OVER 30-60 MINUTES ON DAY 3
     Dates: start: 20121107, end: 20121107
  12. CYCLOPHOSPHAMIDE [Suspect]
     Dosage: 750 MG/M2, OVER 30-60 MINUTES ON DAY 3
     Route: 042
     Dates: start: 20130130, end: 20130130
  13. DOXORUBICIN [Suspect]
     Indication: DIFFUSE LARGE B-CELL LYMPHOMA
     Dosage: 50 MG/M2, ON DAY 3
     Route: 042
     Dates: start: 20120831, end: 20120831
  14. DOXORUBICIN [Suspect]
     Dosage: 50 MG/M2, ON DAY 3
     Route: 042
     Dates: start: 20120921, end: 20120921
  15. DOXORUBICIN [Suspect]
     Dosage: 50 MG/M2, ON DAY 3
     Route: 042
     Dates: start: 20121107, end: 20121107
  16. DOXORUBICIN [Suspect]
     Dosage: 50 MG/M2, ONCE- ON DAY 3
     Route: 042
     Dates: start: 20130130, end: 20130130
  17. VINCRISTINE SULFATE [Suspect]
     Indication: DIFFUSE LARGE B-CELL LYMPHOMA
     Dosage: 1.4 MG/M2, ON DAY 3
     Route: 042
     Dates: start: 20120831, end: 20120831
  18. VINCRISTINE SULFATE [Suspect]
     Dosage: 1.4 MG/M2, ON DAY 3
     Route: 042
     Dates: start: 20120921, end: 20120921
  19. VINCRISTINE SULFATE [Suspect]
     Dosage: 1.4 MG/M2, ON DAY 3
     Route: 042
     Dates: start: 20121107, end: 20121107
  20. VINCRISTINE SULFATE [Suspect]
     Dosage: 1.4 MG/M2, ONCE-ON DAY 3
     Route: 042
     Dates: start: 20130130, end: 20130130
  21. PREDNISONE [Suspect]
     Indication: DIFFUSE LARGE B-CELL LYMPHOMA
     Dosage: 100 MG, QD, ON DAYS 3-7
     Route: 048
     Dates: start: 20120831, end: 20120904
  22. PREDNISONE [Suspect]
     Dosage: 100 MG, QD, ON DAYS 3-7
     Route: 048
     Dates: start: 20120921, end: 20120925
  23. PREDNISONE [Suspect]
     Dosage: 100 MG, QD ON DAYS 3-7
     Route: 048
     Dates: start: 20121107, end: 20121111
  24. PREDNISONE [Suspect]
     Dosage: 100 MG, QD-ON DAYS 3-7
     Route: 048
     Dates: start: 20130130, end: 20130203

REACTIONS (8)
  - Lymphocyte count decreased [Recovering/Resolving]
  - Staphylococcal infection [Recovering/Resolving]
  - Pyrexia [Recovering/Resolving]
  - Febrile neutropenia [Recovering/Resolving]
  - Lymphocyte count decreased [Recovering/Resolving]
  - Cystitis noninfective [Not Recovered/Not Resolved]
  - Neutrophil count decreased [Not Recovered/Not Resolved]
  - White blood cell count decreased [Not Recovered/Not Resolved]
